FAERS Safety Report 5857106-X (Version None)
Quarter: 2008Q3

REPORT INFORMATION
  Report Type: 
  Country: None (occurrence: None)
  Receive Date: 20080825
  Receipt Date: 20080303
  Transmission Date: 20090109
  Serious: No
  Sender: FDA-Public Use
  Company Number: A0708407A

PATIENT
  Age: 54 Year
  Sex: Female
  Weight: 76.4 kg

DRUGS (10)
  1. BEXXAR [Suspect]
     Indication: BLOOD STEM CELL TRANSPLANT FAILURE
     Dates: start: 20080107, end: 20080124
  2. POTASSIUM IODIDE [Suspect]
     Dates: start: 20080106, end: 20080124
  3. OMEPRAZOLE [Concomitant]
  4. LEXAPRO [Concomitant]
  5. FEXOFENADINE [Concomitant]
  6. MULTI-VITAMIN [Concomitant]
  7. OS-CAL [Concomitant]
  8. GLUCOSAMINE CHONDROITIN [Concomitant]
  9. COLACE [Concomitant]
  10. UNKNOWN [Concomitant]

REACTIONS (5)
  - ERYTHEMA [None]
  - FEELING HOT [None]
  - FLUSHING [None]
  - PAIN IN EXTREMITY [None]
  - RASH [None]
